FAERS Safety Report 13566214 (Version 1)
Quarter: 2017Q2

REPORT INFORMATION
  Report Type: Spontaneous
  Country: US (occurrence: US)
  Receive Date: 20170519
  Receipt Date: 20170519
  Transmission Date: 20170830
  Serious: No
  Sender: FDA-Public Use
  Company Number: None

PATIENT
  Age: 53 Year
  Sex: Female

DRUGS (1)
  1. LIDOCAIN 5% PATCH [Suspect]
     Active Substance: LIDOCAINE
     Indication: ANALGESIC THERAPY

REACTIONS (3)
  - Drug effect decreased [None]
  - Product substitution issue [None]
  - Product adhesion issue [None]

NARRATIVE: CASE EVENT DATE: 20170519
